FAERS Safety Report 7267232-9 (Version None)
Quarter: 2011Q1

REPORT INFORMATION
  Report Type: 
  Country: None (occurrence: None)
  Receive Date: 20110201
  Receipt Date: 20100309
  Transmission Date: 20110831
  Serious: Yes (Hospitalization, Other)
  Sender: FDA-Public Use
  Company Number: US-BAYER-201017830NA

PATIENT
  Sex: Female

DRUGS (4)
  1. YAZ [Suspect]
     Indication: MENSTRUATION IRREGULAR
     Route: 048
     Dates: start: 20071001, end: 20080401
  2. YAZ [Suspect]
     Indication: CONTRACEPTION
  3. YASMIN [Suspect]
     Indication: CONTRACEPTION
     Route: 048
     Dates: start: 20071001, end: 20080401
  4. YASMIN [Suspect]
     Indication: MENSTRUATION IRREGULAR

REACTIONS (4)
  - PARALYSIS [None]
  - PAIN [None]
  - CEREBROVASCULAR ACCIDENT [None]
  - VERTIGO [None]
